FAERS Safety Report 6693816-2 (Version None)
Quarter: 2010Q2

REPORT INFORMATION
  Report Type: 
  Country: None (occurrence: None)
  Receive Date: 20100423
  Receipt Date: 20100416
  Transmission Date: 20101027
  Serious: Yes (Other)
  Sender: FDA-Public Use
  Company Number: US-B.I. PHARMACEUTICALS,INC./RIDGEFIELD-2010-BP-04546PF

PATIENT
  Sex: Female
  Weight: 136.08 kg

DRUGS (11)
  1. SPIRIVA [Suspect]
  2. LYRICA [Suspect]
     Indication: NEUROPATHY PERIPHERAL
     Route: 048
     Dates: start: 20080101
  3. CELEBREX [Suspect]
     Indication: NEUROPATHY PERIPHERAL
     Route: 048
     Dates: start: 20080101
  4. CELEBREX [Suspect]
     Indication: ARTHRITIS
  5. LISINOPRIL [Concomitant]
  6. VENTOLIN [Concomitant]
     Route: 055
  7. SIMVASTATIN [Concomitant]
  8. METFORMIN HCL [Concomitant]
  9. LASIX [Concomitant]
  10. POTASSIUM [Concomitant]
  11. INSULIN [Concomitant]

REACTIONS (1)
  - CONDITION AGGRAVATED [None]
